FAERS Safety Report 13328856 (Version 2)
Quarter: 2017Q1

REPORT INFORMATION
  Report Type: Report from Study
  Country: GB (occurrence: GB)
  Receive Date: 20170313
  Receipt Date: 20170327
  Transmission Date: 20170428
  Serious: Yes (Death, Hospitalization)
  Sender: FDA-Public Use
  Company Number: GB-TEVA-746369ACC

PATIENT
  Age: 76 Year
  Sex: Male
  Weight: 72.6 kg

DRUGS (14)
  1. FUROSEMIDE. [Concomitant]
     Active Substance: FUROSEMIDE
     Dates: start: 20161214, end: 20161214
  2. METOCLOPRAMIDE. [Concomitant]
     Active Substance: METOCLOPRAMIDE
     Dates: start: 20160214, end: 20160214
  3. MST [Concomitant]
     Active Substance: MORPHINE SULFATE\NALTREXONE HYDROCHLORIDE
     Route: 065
     Dates: start: 20160918
  4. CISPLATIN. [Suspect]
     Active Substance: CISPLATIN
     Indication: MESOTHELIOMA
     Dosage: DAY 1 OF EACH 21 DAY CYCLE
     Route: 042
     Dates: start: 20161026, end: 20161214
  5. METOCLOPRAMIDE. [Concomitant]
     Active Substance: METOCLOPRAMIDE
     Dates: start: 20161116
  6. GEMCITABINE [Suspect]
     Active Substance: GEMCITABINE\GEMCITABINE HYDROCHLORIDE
     Indication: MESOTHELIOMA
     Dosage: DAYS 1 AND 8 OF EACH 21 DAY CYCLE
     Route: 042
     Dates: start: 20161026, end: 20161214
  7. APREPITANT. [Concomitant]
     Active Substance: APREPITANT
     Dates: start: 20161215, end: 20161216
  8. DEXAMETHASONE. [Concomitant]
     Active Substance: DEXAMETHASONE
     Dates: start: 20161214, end: 20161214
  9. OXYGEN. [Concomitant]
     Active Substance: OXYGEN
     Dates: start: 20161122, end: 20161123
  10. ONDANSETRON [Concomitant]
     Active Substance: ONDANSETRON
     Dates: start: 20161215, end: 20161215
  11. DEXAMETHASONE. [Concomitant]
     Active Substance: DEXAMETHASONE
     Dates: start: 20161215, end: 20161217
  12. AMOXICILLIN. [Concomitant]
     Active Substance: AMOXICILLIN
     Dates: start: 20161202, end: 20161208
  13. APREPITANT. [Concomitant]
     Active Substance: APREPITANT
     Dates: start: 20161214, end: 20161214
  14. ONDANSETRON [Concomitant]
     Active Substance: ONDANSETRON
     Dates: start: 20161214, end: 20161214

REACTIONS (3)
  - Dyspnoea [Fatal]
  - Oedema peripheral [Fatal]
  - Disease progression [Fatal]

NARRATIVE: CASE EVENT DATE: 20161219
